FAERS Safety Report 24963438 (Version 1)
Quarter: 2025Q1

REPORT INFORMATION
  Report Type: Spontaneous
  Country: CA (occurrence: CA)
  Receive Date: 20250213
  Receipt Date: 20250213
  Transmission Date: 20250409
  Serious: Yes (Other)
  Sender: CSL BEHRING
  Company Number: CA-BEH-2025194644

PATIENT
  Age: 83 Year
  Sex: Female

DRUGS (8)
  1. HUMAN IMMUNOGLOBULIN G [Suspect]
     Active Substance: HUMAN IMMUNOGLOBULIN G
     Indication: Secondary immunodeficiency
     Dosage: 8 G, QW
     Route: 058
  2. HUMAN IMMUNOGLOBULIN G [Suspect]
     Active Substance: HUMAN IMMUNOGLOBULIN G
     Dosage: 8 G, QW
     Route: 058
  3. HUMAN IMMUNOGLOBULIN G [Suspect]
     Active Substance: HUMAN IMMUNOGLOBULIN G
     Dosage: 8 G, QW
     Route: 065
  4. HUMAN IMMUNOGLOBULIN G [Suspect]
     Active Substance: HUMAN IMMUNOGLOBULIN G
     Dosage: 8 G, QW
     Route: 058
  5. HIZENTRA [Concomitant]
     Active Substance: HUMAN IMMUNOGLOBULIN G
     Indication: Product used for unknown indication
     Dosage: 30 ML, QW
     Route: 058
  6. IBRUTINIB [Concomitant]
     Active Substance: IBRUTINIB
     Indication: Chemotherapy
     Dosage: 1 DF, OD
     Route: 065
  7. TROXIPIDE [Concomitant]
     Active Substance: TROXIPIDE
     Indication: Product used for unknown indication
     Route: 065
  8. TROXIPIDE [Concomitant]
     Active Substance: TROXIPIDE
     Route: 065

REACTIONS (16)
  - Cystitis [Not Recovered/Not Resolved]
  - Device infusion issue [Not Recovered/Not Resolved]
  - Diverticulitis [Not Recovered/Not Resolved]
  - Influenza [Not Recovered/Not Resolved]
  - Infusion site mass [Not Recovered/Not Resolved]
  - Infusion site swelling [Not Recovered/Not Resolved]
  - Leukaemia [Not Recovered/Not Resolved]
  - Peripheral swelling [Not Recovered/Not Resolved]
  - Piloerection [Not Recovered/Not Resolved]
  - Product administration error [Not Recovered/Not Resolved]
  - Product availability issue [Not Recovered/Not Resolved]
  - Product dose omission issue [Not Recovered/Not Resolved]
  - Product quality issue [Not Recovered/Not Resolved]
  - Upper limb fracture [Not Recovered/Not Resolved]
  - Wrist fracture [Not Recovered/Not Resolved]
  - Off label use [Unknown]
